FAERS Safety Report 6973140-0 (Version None)
Quarter: 2010Q3

REPORT INFORMATION
  Report Type: 
  Country: None (occurrence: None)
  Receive Date: 20100909
  Receipt Date: 20100902
  Transmission Date: 20110219
  Serious: Yes (Other)
  Sender: FDA-Public Use
  Company Number: US-ROCHE-693750

PATIENT
  Sex: Female
  Weight: 91.6 kg

DRUGS (9)
  1. BONIVA [Suspect]
     Indication: OSTEOPOROSIS
     Dosage: STRENGTH: 3 MG/3 ML, DATE OF LAST DOSE: MAY 2010
     Route: 042
     Dates: start: 20070101
  2. DILTIAZEM [Concomitant]
  3. TOPROL-XL [Concomitant]
  4. TEKTURNA [Concomitant]
  5. HYDROCHLOROTHIAZIDE [Concomitant]
     Dosage: DRUG REPORTED AS: HCTZ 25 MG
  6. LEXAPRO [Concomitant]
     Dosage: DRUG REPORTED AS: LEXAPRO 5 MG
  7. VITAMINE D [Concomitant]
     Dosage: DRUG REPORTED AS: VITAMIN D 500000
  8. SYMBICORT [Concomitant]
  9. ALPHA-LIPOIC ACID [Concomitant]

REACTIONS (2)
  - PAIN IN EXTREMITY [None]
  - SPINAL COLUMN STENOSIS [None]
